FAERS Safety Report 21817078 (Version 3)
Quarter: 2023Q1

REPORT INFORMATION
  Report Type: Spontaneous
  Country: CA (occurrence: CA)
  Receive Date: 20230104
  Receipt Date: 20230306
  Transmission Date: 20230417
  Serious: Yes (Hospitalization, Other)
  Sender: FDA-Public Use
  Company Number: CA-SAMSUNG BIOEPIS-SB-2022-33398

PATIENT
  Age: 48 Year
  Sex: Female
  Weight: 106 kg

DRUGS (72)
  1. TRASTUZUMAB [Suspect]
     Active Substance: TRASTUZUMAB
     Indication: Tardive dyskinesia
     Route: 065
  2. TRASTUZUMAB [Suspect]
     Active Substance: TRASTUZUMAB
     Route: 065
  3. TRASTUZUMAB [Suspect]
     Active Substance: TRASTUZUMAB
     Dosage: UNKNOWN
     Route: 048
  4. TRASTUZUMAB [Suspect]
     Active Substance: TRASTUZUMAB
     Route: 065
  5. TRASTUZUMAB [Suspect]
     Active Substance: TRASTUZUMAB
     Route: 065
  6. TRASTUZUMAB [Suspect]
     Active Substance: TRASTUZUMAB
     Route: 065
  7. TRASTUZUMAB [Suspect]
     Active Substance: TRASTUZUMAB
     Route: 065
  8. TRASTUZUMAB [Suspect]
     Active Substance: TRASTUZUMAB
     Route: 065
  9. APREPITANT [Suspect]
     Active Substance: APREPITANT
     Indication: Supportive care
     Route: 048
  10. APREPITANT [Suspect]
     Active Substance: APREPITANT
     Route: 048
  11. APREPITANT [Suspect]
     Active Substance: APREPITANT
     Dosage: UNKNOWN
     Route: 048
  12. APREPITANT [Suspect]
     Active Substance: APREPITANT
     Route: 048
  13. APREPITANT [Suspect]
     Active Substance: APREPITANT
     Route: 048
  14. APREPITANT [Suspect]
     Active Substance: APREPITANT
     Route: 048
  15. APREPITANT [Suspect]
     Active Substance: APREPITANT
     Route: 048
  16. BETAMETHASONE [Suspect]
     Active Substance: BETAMETHASONE
     Indication: Tardive dyskinesia
     Dosage: UNKNOWN; 2 EVERY 1 DAYS
     Route: 048
  17. BETAMETHASONE [Suspect]
     Active Substance: BETAMETHASONE
     Dosage: UNKNOWN; 2 EVERY 1 DAYS
     Route: 065
  18. BETAMETHASONE [Suspect]
     Active Substance: BETAMETHASONE
     Dosage: UNKNOWN
     Route: 048
  19. DEXAMETHASONE [Suspect]
     Active Substance: DEXAMETHASONE
     Indication: Supportive care
     Route: 048
  20. DEXAMETHASONE [Suspect]
     Active Substance: DEXAMETHASONE
     Dosage: UNKNOWN
     Route: 048
  21. DOXORUBICIN [Suspect]
     Active Substance: DOXORUBICIN
     Indication: Breast cancer female
     Route: 042
  22. DOXORUBICIN [Suspect]
     Active Substance: DOXORUBICIN
     Route: 042
  23. DOXORUBICIN [Suspect]
     Active Substance: DOXORUBICIN
     Route: 042
  24. EMEND [Suspect]
     Active Substance: APREPITANT
     Indication: Product used for unknown indication
     Dosage: UNKNOWN
     Route: 048
  25. ENOXAPARIN [Suspect]
     Active Substance: ENOXAPARIN
     Indication: Tardive dyskinesia
     Route: 058
  26. ENOXAPARIN [Suspect]
     Active Substance: ENOXAPARIN
     Dosage: UNKNOWN
     Route: 058
  27. FILGRASTIM [Suspect]
     Active Substance: FILGRASTIM
     Indication: Supportive care
     Route: 048
  28. FILGRASTIM [Suspect]
     Active Substance: FILGRASTIM
     Route: 048
  29. LEVOFLOXACIN HEMIHYDRATE [Suspect]
     Active Substance: LEVOFLOXACIN
     Indication: Tardive dyskinesia
     Route: 048
  30. LEVOFLOXACIN HEMIHYDRATE [Suspect]
     Active Substance: LEVOFLOXACIN
     Dosage: UNKNOWN
     Route: 048
  31. LORAZEPAM [Suspect]
     Active Substance: LORAZEPAM
     Indication: Tardive dyskinesia
     Dosage: 2 EVERY 1 DAYS
     Route: 048
  32. LORAZEPAM [Suspect]
     Active Substance: LORAZEPAM
     Dosage: UNKNOWN
     Route: 048
  33. LORAZEPAM [Suspect]
     Active Substance: LORAZEPAM
     Route: 048
  34. LORAZEPAM [Suspect]
     Active Substance: LORAZEPAM
     Route: 048
  35. METOCLOPRAMIDE [Suspect]
     Active Substance: METOCLOPRAMIDE
     Indication: Tardive dyskinesia
     Dosage: 4 EVERY 1 DAYS
     Route: 048
  36. METOCLOPRAMIDE [Suspect]
     Active Substance: METOCLOPRAMIDE
     Dosage: UNKNOWN
     Route: 048
  37. METOCLOPRAMIDE [Suspect]
     Active Substance: METOCLOPRAMIDE
     Route: 048
  38. ONDANSETRON HYDROCHLORIDE [Suspect]
     Active Substance: ONDANSETRON HYDROCHLORIDE
     Indication: Supportive care
     Route: 048
  39. ONDANSETRON HYDROCHLORIDE [Suspect]
     Active Substance: ONDANSETRON HYDROCHLORIDE
     Dosage: UNKNOWN
     Route: 048
  40. PACLITAXEL [Suspect]
     Active Substance: PACLITAXEL
     Indication: Supportive care
     Dosage: LIQUID INTRAVENOUS
     Route: 042
  41. PACLITAXEL [Suspect]
     Active Substance: PACLITAXEL
     Indication: Breast cancer female
     Route: 042
  42. PACLITAXEL [Suspect]
     Active Substance: PACLITAXEL
     Dosage: LIQUID INTRAVENOUS
     Route: 042
  43. PACLITAXEL [Suspect]
     Active Substance: PACLITAXEL
     Route: 042
  44. PACLITAXEL [Suspect]
     Active Substance: PACLITAXEL
     Route: 042
  45. PACLITAXEL [Suspect]
     Active Substance: PACLITAXEL
     Route: 042
  46. PEGFILGRASTIM [Suspect]
     Active Substance: PEGFILGRASTIM
     Indication: Supportive care
     Route: 058
  47. CYCLOPHOSPHAMIDE [Suspect]
     Active Substance: CYCLOPHOSPHAMIDE
     Indication: Breast cancer female
     Route: 042
  48. CYCLOPHOSPHAMIDE [Suspect]
     Active Substance: CYCLOPHOSPHAMIDE
     Indication: Tardive dyskinesia
     Route: 042
  49. CYCLOPHOSPHAMIDE [Suspect]
     Active Substance: CYCLOPHOSPHAMIDE
     Route: 042
  50. CYCLOPHOSPHAMIDE [Suspect]
     Active Substance: CYCLOPHOSPHAMIDE
     Dosage: UNKNOWN
     Route: 065
  51. RANITIDINE HYDROCHLORIDE [Suspect]
     Active Substance: RANITIDINE HYDROCHLORIDE
     Indication: Tardive dyskinesia
     Route: 048
  52. RANITIDINE HYDROCHLORIDE [Suspect]
     Active Substance: RANITIDINE HYDROCHLORIDE
     Dosage: 2 EVERY 1 DAY
     Route: 048
  53. RANITIDINE HYDROCHLORIDE [Suspect]
     Active Substance: RANITIDINE HYDROCHLORIDE
     Dosage: UNKNOWN
     Route: 048
  54. TYLENOL WITH CODEINE [Suspect]
     Active Substance: ACETAMINOPHEN\CODEINE PHOSPHATE
     Indication: Tardive dyskinesia
     Dosage: UNKNOWN
     Route: 065
  55. DOXORUBICIN HYDROCHLORIDE [Suspect]
     Active Substance: DOXORUBICIN HYDROCHLORIDE
     Indication: Breast cancer
     Dosage: UNKNOWN
     Route: 042
  56. NEULASTA [Suspect]
     Active Substance: PEGFILGRASTIM
     Indication: Supportive care
     Dosage: SOLUTION SUBCUTANEOUS
     Route: 058
  57. NEULASTA [Suspect]
     Active Substance: PEGFILGRASTIM
     Dosage: SOLUTION SUBCUTANEOUS
     Route: 058
  58. NEULASTA [Suspect]
     Active Substance: PEGFILGRASTIM
     Route: 058
  59. NEULASTA [Suspect]
     Active Substance: PEGFILGRASTIM
     Route: 058
  60. NEULASTA [Suspect]
     Active Substance: PEGFILGRASTIM
     Route: 058
  61. NEUPOGEN [Suspect]
     Active Substance: FILGRASTIM
     Indication: Supportive care
     Dosage: UNKNOWN, SOLUTION INTRAVENOUS
     Route: 065
  62. NEUPOGEN [Suspect]
     Active Substance: FILGRASTIM
     Route: 048
  63. NEUPOGEN [Suspect]
     Active Substance: FILGRASTIM
     Route: 048
  64. NEUPOGEN [Suspect]
     Active Substance: FILGRASTIM
     Route: 065
  65. NEUPOGEN [Suspect]
     Active Substance: FILGRASTIM
     Dosage: SOLUTION INTRAVENOUS
     Route: 042
  66. ACETAMINOPHEN AND CODEINE [Suspect]
     Active Substance: ACETAMINOPHEN\CODEINE PHOSPHATE
     Indication: Tardive dyskinesia
     Dosage: ELX, USP160 MG-8MG/5ML
  67. ACETAMINOPHEN AND CODEINE [Suspect]
     Active Substance: ACETAMINOPHEN\CODEINE PHOSPHATE
     Dosage: ELX, USP160 MG-8MG/5ML, ELIXIR
  68. LEVOFLOXACIN [Suspect]
     Active Substance: LEVOFLOXACIN
     Indication: Tardive dyskinesia
     Route: 048
  69. LEVOFLOXACIN [Suspect]
     Active Substance: LEVOFLOXACIN
     Dosage: UNKNOWN
     Route: 048
  70. LEVOFLOXACIN [Suspect]
     Active Substance: LEVOFLOXACIN
     Route: 048
  71. ONDANSETRON [Suspect]
     Active Substance: ONDANSETRON
     Indication: Supportive care
     Route: 048
  72. ONDANSETRON [Suspect]
     Active Substance: ONDANSETRON
     Route: 048

REACTIONS (14)
  - Atelectasis [Recovered/Resolved]
  - Computerised tomogram thorax abnormal [Recovered/Resolved]
  - Cough [Recovered/Resolved]
  - Dyspnoea [Recovered/Resolved]
  - Fatigue [Recovered/Resolved]
  - Gastrointestinal disorder [Recovered/Resolved]
  - Hypoxia [Recovered/Resolved]
  - Nausea [Recovered/Resolved]
  - Pyrexia [Recovered/Resolved]
  - Rash [Recovered/Resolved]
  - Computerised tomogram thorax [Recovered/Resolved]
  - Off label use [Recovered/Resolved]
  - Product use in unapproved indication [Unknown]
  - Product use issue [Unknown]
